FAERS Safety Report 25800178 (Version 1)
Quarter: 2025Q3

REPORT INFORMATION
  Report Type: Spontaneous
  Country: US (occurrence: US)
  Receive Date: 20250915
  Receipt Date: 20250915
  Transmission Date: 20251021
  Serious: No
  Sender: ROCHE
  Company Number: US-ROCHE-10000386295

PATIENT
  Age: 50 Year
  Sex: Female

DRUGS (1)
  1. ACTEMRA ACTPEN [Suspect]
     Active Substance: TOCILIZUMAB
     Indication: Product used for unknown indication
     Dosage: FROM STRENGTH: 162MG/0.9M
     Route: 058
     Dates: start: 202408

REACTIONS (2)
  - Fatigue [Unknown]
  - Myalgia [Unknown]
